FAERS Safety Report 8711367 (Version 3)
Quarter: 2013Q4

REPORT INFORMATION
  Report Type: Report from Study
  Country: US (occurrence: US)
  Receive Date: 20120807
  Receipt Date: 20131008
  Transmission Date: 20140711
  Serious: Yes (Other)
  Sender: FDA-Public Use
  Company Number: US-ROCHE-557580

PATIENT
  Sex: 0

DRUGS (2)
  1. RITUXIMAB [Suspect]
     Indication: MANTLE CELL LYMPHOMA
     Dosage: FOR 4 WEEKS, FIRST DOSE ON DAY 1 OF CYCLE 1
     Route: 042
  2. LENALIDOMIDE [Suspect]
     Indication: MANTLE CELL LYMPHOMA
     Dosage: FREQUENCY: DAILY, ON DAY 1-21 OF 28 DAY CYCLE
     Route: 048

REACTIONS (40)
  - Neutropenia [Unknown]
  - Pyrexia [Unknown]
  - Lymphopenia [Unknown]
  - Febrile neutropenia [Unknown]
  - Myalgia [Unknown]
  - Hypercalcaemia [Unknown]
  - Thrombocytopenia [Unknown]
  - Rash [Unknown]
  - Fatigue [Unknown]
  - Tremor [Unknown]
  - Ataxia [Unknown]
  - Cough [Unknown]
  - Deep vein thrombosis [Unknown]
  - Dyspnoea [Unknown]
  - Face oedema [Unknown]
  - Infection [Unknown]
  - Peripheral sensory neuropathy [Unknown]
  - Respiratory failure [Unknown]
  - Anaemia [Unknown]
  - Leukopenia [Unknown]
  - Abdominal pain [Unknown]
  - Pain in extremity [Unknown]
  - Pleural effusion [Unknown]
  - Infection [Unknown]
  - Hyperuricaemia [Unknown]
  - Hypophosphataemia [Unknown]
  - Hyperglycaemia [Unknown]
  - Hyperkalaemia [Unknown]
  - Embolism [Unknown]
  - Vomiting [Unknown]
  - Dizziness [Unknown]
  - Pneumothorax [Unknown]
  - Arrhythmia [Unknown]
  - Oedema peripheral [Unknown]
  - Hypocalcaemia [Unknown]
  - Liver function test abnormal [Unknown]
  - Blood lactate dehydrogenase increased [Unknown]
  - Hyponatraemia [Unknown]
  - Hypermagnesaemia [Unknown]
  - Blood creatinine increased [Unknown]
